FAERS Safety Report 6332972-2 (Version None)
Quarter: 2009Q3

REPORT INFORMATION
  Report Type: 
  Country: None (occurrence: None)
  Receive Date: 20090828
  Receipt Date: 20090820
  Transmission Date: 20100115
  Serious: Yes (Hospitalization)
  Sender: FDA-Public Use
  Company Number: PHHY2009JP32201

PATIENT
  Sex: Female
  Weight: 49.7 kg

DRUGS (5)
  1. AMN107 AMN+CAP [Suspect]
     Indication: CHRONIC MYELOID LEUKAEMIA
     Dosage: 800 MG DAILY
     Route: 048
     Dates: start: 20090421
  2. EPADEL [Concomitant]
     Dosage: UNK
     Route: 065
     Dates: start: 20080804
  3. ALLEGRA [Concomitant]
     Dosage: UNK
     Route: 048
     Dates: start: 20060328
  4. ARICEPT [Concomitant]
     Dosage: UNK
     Route: 048
     Dates: start: 20060328
  5. GEFANIL [Concomitant]
     Dosage: UNK
     Route: 048
     Dates: start: 20060328

REACTIONS (5)
  - BLOOD BILIRUBIN INCREASED [None]
  - ELECTROCARDIOGRAM QT PROLONGED [None]
  - PLATELET COUNT DECREASED [None]
  - WEIGHT INCREASED [None]
  - WHITE BLOOD CELL COUNT DECREASED [None]
